FAERS Safety Report 9401946 (Version 1)
Quarter: 2013Q3

REPORT INFORMATION
  Report Type: Spontaneous
  Country: US (occurrence: US)
  Receive Date: 20130716
  Receipt Date: 20130716
  Transmission Date: 20140515
  Serious: No
  Sender: FDA-Public Use
  Company Number: US-PFIZER INC-2013205417

PATIENT
  Age: 54 Year
  Sex: Female

DRUGS (3)
  1. IBUPROFEN [Suspect]
     Dosage: 200 MG, UNK
  2. METHOTREXATE SODIUM [Suspect]
     Dosage: 2.5 MG, UNK
  3. CODEINE SULFATE [Suspect]
     Dosage: 15 MG, UNK

REACTIONS (1)
  - Drug hypersensitivity [Unknown]
